FAERS Safety Report 14509428 (Version 1)
Quarter: 2018Q1

REPORT INFORMATION
  Report Type: Spontaneous
  Country: US (occurrence: US)
  Receive Date: 20180209
  Receipt Date: 20180209
  Transmission Date: 20180509
  Serious: Yes (Death, Life-Threatening, Hospitalization, Other)
  Sender: FDA-Public Use
  Company Number: US-LUPIN PHARMACEUTICALS INC.-2018-00690

PATIENT
  Age: 51 Year
  Sex: Male

DRUGS (1)
  1. AMLODIPINE BESYLATE TABLETS USP, 10 MG [Suspect]
     Active Substance: AMLODIPINE BESYLATE
     Indication: SUICIDE ATTEMPT
     Dosage: 50 10-MG TABLETS OF AMLODIPINE (TOTAL OF 500 MG)
     Route: 065

REACTIONS (8)
  - Cardiac failure [Fatal]
  - Intentional self-injury [Fatal]
  - Peripheral ischaemia [Fatal]
  - Pulmonary oedema [Fatal]
  - Multiple organ dysfunction syndrome [Fatal]
  - Intentional overdose [Fatal]
  - Acidosis [Fatal]
  - Toxicity to various agents [Fatal]
